FAERS Safety Report 5959189-5 (Version None)
Quarter: 2008Q4

REPORT INFORMATION
  Report Type: 
  Country: None (occurrence: None)
  Receive Date: 20081120
  Receipt Date: 20080527
  Transmission Date: 20090506
  Serious: No
  Sender: FDA-Public Use
  Company Number: A0730710A

PATIENT
  Age: 46 Year
  Sex: Female

DRUGS (5)
  1. WELLBUTRIN SR [Suspect]
     Indication: DRUG USE FOR UNKNOWN INDICATION
     Dosage: 150MG PER DAY
     Route: 048
     Dates: start: 20030101
  2. VITEX [Suspect]
     Indication: HORMONE REPLACEMENT THERAPY
     Dosage: 225MG TWICE PER DAY
     Route: 048
     Dates: start: 20080319, end: 20080425
  3. INDOLPLEX [Suspect]
     Indication: HORMONE REPLACEMENT THERAPY
     Dosage: 240MG PER DAY
     Route: 048
     Dates: start: 20080319, end: 20080425
  4. PROBIOTIC [Suspect]
     Indication: DRUG USE FOR UNKNOWN INDICATION
     Dates: start: 20070901, end: 20071001
  5. VITAMINS [Concomitant]

REACTIONS (9)
  - ABDOMINAL DISTENSION [None]
  - CONFUSIONAL STATE [None]
  - DISORIENTATION [None]
  - DISSOCIATION [None]
  - DIZZINESS [None]
  - JUDGEMENT IMPAIRED [None]
  - PALPITATIONS [None]
  - PARAESTHESIA [None]
  - PRURITUS [None]
